FAERS Safety Report 9155333 (Version 1)
Quarter: 2013Q1

REPORT INFORMATION
  Report Type: Spontaneous
  Country: SE (occurrence: SE)
  Receive Date: 20130311
  Receipt Date: 20130311
  Transmission Date: 20140127
  Serious: Yes (Hospitalization)
  Sender: FDA-Public Use
  Company Number: SE-ASTRAZENECA-2013SE14418

PATIENT
  Sex: Female
  Weight: 69 kg

DRUGS (4)
  1. CRESTOR [Suspect]
     Indication: BLOOD CHOLESTEROL INCREASED
     Route: 048
     Dates: start: 201106, end: 201206
  2. ZOLOFT [Concomitant]
     Indication: DEPRESSION
  3. ZOPIKLON [Concomitant]
  4. PROPAVAN [Concomitant]

REACTIONS (5)
  - Acute myeloid leukaemia [Unknown]
  - White blood cell count decreased [Unknown]
  - Platelet count decreased [Unknown]
  - Blood cholesterol increased [Unknown]
  - Drug ineffective [Unknown]
